FAERS Safety Report 6050067-2 (Version None)
Quarter: 2009Q1

REPORT INFORMATION
  Report Type: 
  Country: None (occurrence: None)
  Receive Date: 20090126
  Receipt Date: 20090119
  Transmission Date: 20090719
  Serious: Yes (Hospitalization)
  Sender: FDA-Public Use
  Company Number: FR-BRISTOL-MYERS SQUIBB COMPANY-14475982

PATIENT
  Age: 64 Year
  Sex: Female

DRUGS (3)
  1. ORENCIA [Suspect]
     Indication: RHEUMATOID ARTHRITIS
     Dosage: STOPPED ON 18-APR-2008;RESUMED ON 12 JUN 08
     Route: 042
     Dates: start: 20070918
  2. CORTANCYL [Concomitant]
     Dosage: THERAPY ONGOING
     Route: 048
     Dates: start: 20010101
  3. MOPRAL [Concomitant]
     Route: 048

REACTIONS (1)
  - PERICARDITIS [None]
